FAERS Safety Report 7974721 (Version 3)
Quarter: 2013Q1

REPORT INFORMATION
  Report Type: Spontaneous
  Country: US (occurrence: US)
  Receive Date: 20110606
  Receipt Date: 20130110
  Transmission Date: 20140127
  Serious: No
  Sender: FDA-Public Use
  Company Number: US-BIOGENIDEC-2011BI020261

PATIENT
  Age: 58 Year
  Sex: Female

DRUGS (4)
  1. TYSABRI [Suspect]
     Indication: MULTIPLE SCLEROSIS
     Route: 042
     Dates: start: 20070515, end: 20071102
  2. TYSABRI [Suspect]
     Indication: MULTIPLE SCLEROSIS
     Route: 042
     Dates: start: 20080118, end: 20101028
  3. TYSABRI [Suspect]
     Indication: MULTIPLE SCLEROSIS
     Route: 042
     Dates: start: 20110526, end: 20110526
  4. AVONEX [Concomitant]
     Indication: MULTIPLE SCLEROSIS
     Route: 030
     Dates: start: 20040324

REACTIONS (5)
  - Feeling abnormal [Not Recovered/Not Resolved]
  - Mobility decreased [Recovered/Resolved]
  - General symptom [Not Recovered/Not Resolved]
  - Mental impairment [Recovered/Resolved]
  - Immune system disorder [Recovered/Resolved]
